APPROVED DRUG PRODUCT: PHENTERMINE HYDROCHLORIDE
Active Ingredient: PHENTERMINE HYDROCHLORIDE
Strength: 30MG
Dosage Form/Route: CAPSULE;ORAL
Application: A087777 | Product #001
Applicant: TEVA PHARMACEUTICALS USA INC
Approved: Nov 1, 1985 | RLD: No | RS: No | Type: DISCN